FAERS Safety Report 6424241-7 (Version None)
Quarter: 2009Q4

REPORT INFORMATION
  Report Type: 
  Country: None (occurrence: None)
  Receive Date: 20091102
  Receipt Date: 20091021
  Transmission Date: 20100525
  Serious: Yes (Other)
  Sender: FDA-Public Use
  Company Number: US-PFIZER INC-2009287180

PATIENT
  Sex: Female

DRUGS (2)
  1. CLINDAMYCIN PHOSPHATE [Suspect]
     Dosage: UNK
     Route: 042
     Dates: start: 20030926, end: 20030928
  2. ENBREL [Suspect]
     Indication: RHEUMATOID ARTHRITIS
     Dosage: 25 NG, 2X/1 WEEK
     Route: 058
     Dates: start: 20021206, end: 20030925

REACTIONS (1)
  - ORAL CANDIDIASIS [None]
